FAERS Safety Report 5528924-2 (Version None)
Quarter: 2007Q4

REPORT INFORMATION
  Report Type: 
  Country: None (occurrence: None)
  Receive Date: 20071129
  Receipt Date: 20071116
  Transmission Date: 20080405
  Serious: Yes (Hospitalization, Other)
  Sender: FDA-Public Use
  Company Number: CA-ELI_LILLY_AND_COMPANY-CA200711004727

PATIENT
  Sex: Male

DRUGS (10)
  1. CIALIS [Suspect]
     Indication: ERECTILE DYSFUNCTION
     Dosage: 20 MG, UNK
     Route: 048
     Dates: end: 20050101
  2. CIALIS [Suspect]
     Dosage: 20 MG, UNK
     Route: 048
     Dates: end: 20070701
  3. COUMADIN [Concomitant]
  4. FERROUS SULFATE TAB [Concomitant]
  5. LIPITOR [Concomitant]
  6. METFORMIN HCL [Concomitant]
  7. MEVACOR [Concomitant]
  8. PANTOLOC                           /01263201/ [Concomitant]
  9. SYNTHROID [Concomitant]
  10. OXYBUTYNIN CHLORIDE [Concomitant]

REACTIONS (3)
  - CARDIAC DISORDER [None]
  - CEREBROVASCULAR ACCIDENT [None]
  - HERNIA [None]
